FAERS Safety Report 8453785-1 (Version None)
Quarter: 2012Q2

REPORT INFORMATION
  Report Type: 
  Country: None (occurrence: None)
  Receive Date: 20120620
  Receipt Date: 20120517
  Transmission Date: 20120825
  Serious: Yes (Other)
  Sender: FDA-Public Use
  Company Number: US-BAYER-2012-049156

PATIENT
  Age: 28 Year
  Sex: Female

DRUGS (1)
  1. MIRENA [Suspect]
     Indication: MENORRHAGIA
     Dosage: 20 MCG/24HR, CONT
     Route: 015
     Dates: start: 20100301

REACTIONS (6)
  - AMENORRHOEA [None]
  - DEVICE ISSUE [None]
  - PREGNANCY [None]
  - DEVICE COMPONENT ISSUE [None]
  - HUMAN CHORIONIC GONADOTROPIN ABNORMAL [None]
  - MENSTRUAL DISORDER [None]
